FAERS Safety Report 25497608 (Version 1)
Quarter: 2025Q3

REPORT INFORMATION
  Report Type: Report from Study
  Country: US (occurrence: US)
  Receive Date: 20250701
  Receipt Date: 20250701
  Transmission Date: 20251020
  Serious: Yes (Other)
  Sender: JOHNSON AND JOHNSON
  Company Number: US-JNJFOC-20250633007

PATIENT

DRUGS (7)
  1. INFLIXIMAB [Suspect]
     Active Substance: INFLIXIMAB
     Indication: Retinal vasculitis
     Route: 041
  2. INFLIXIMAB [Suspect]
     Active Substance: INFLIXIMAB
     Route: 041
  3. INFLIXIMAB [Suspect]
     Active Substance: INFLIXIMAB
     Indication: Retinal vasculitis
     Route: 065
  4. INFLIXIMAB [Suspect]
     Active Substance: INFLIXIMAB
     Route: 065
  5. METHOTREXATE [Suspect]
     Active Substance: METHOTREXATE
     Indication: Retinal vasculitis
     Dosage: 5 MG/KG EVERY 4 WEEKS PLUS 25-MG  MTX WEEKLY?5 MG/KG EVERY 4 WEEKS PLUS 15-MG  MTX WEEKLY?5 MG/KG/Q8
     Route: 065
  6. MYCOPHENOLATE MOFETIL [Suspect]
     Active Substance: MYCOPHENOLATE MOFETIL
     Indication: Retinal vasculitis
     Dosage: 1-1.5 G TWICE DAILY
     Route: 065
  7. AZATHIOPRINE [Suspect]
     Active Substance: AZATHIOPRINE
     Indication: Retinal vasculitis
     Dosage: 1-1.5 G TWICE DAILY
     Route: 065

REACTIONS (10)
  - Pneumonia [Unknown]
  - Mycobacterium chelonae infection [Unknown]
  - Nausea [Unknown]
  - Fatigue [Unknown]
  - Anaemia [Unknown]
  - Liver function test increased [Unknown]
  - Blood urea increased [Unknown]
  - Blood creatinine increased [Unknown]
  - Treatment failure [Unknown]
  - Off label use [Unknown]
